FAERS Safety Report 10217791 (Version 1)
Quarter: 2014Q2

REPORT INFORMATION
  Report Type: Spontaneous
  Country: US (occurrence: US)
  Receive Date: 20140604
  Receipt Date: 20140604
  Transmission Date: 20141212
  Serious: Yes (Hospitalization, Other)
  Sender: FDA-Public Use
  Company Number: US-B.I. PHARMACEUTICALS,INC./RIDGEFIELD-2014-BI-24231BP

PATIENT
  Age: 67 Year
  Sex: Female

DRUGS (2)
  1. DULCOLAX TABLETS [Suspect]
     Indication: PRODUCT USED FOR UNKNOWN INDICATION
     Route: 065
  2. BENEFIBER WITH WHEAT DEXTRIN [Suspect]
     Indication: NUTRITIONAL SUPPLEMENTATION
     Dosage: DOSE PER APPLICATION AND DAILY DOSE: 2 TSP
     Route: 048

REACTIONS (9)
  - Rectal prolapse [Recovered/Resolved]
  - Muscle twitching [Unknown]
  - Oral disorder [Not Recovered/Not Resolved]
  - Tooth disorder [Not Recovered/Not Resolved]
  - Gastrooesophageal reflux disease [Unknown]
  - Constipation [Not Recovered/Not Resolved]
  - Mastication disorder [Unknown]
  - Irritable bowel syndrome [Unknown]
  - Hypersensitivity [Unknown]
